FAERS Safety Report 15035398 (Version 1)
Quarter: 2018Q3

REPORT INFORMATION
  Report Type: Spontaneous
  Country: US (occurrence: US)
  Receive Date: 20180620
  Receipt Date: 20180620
  Transmission Date: 20181010
  Serious: No
  Sender: FDA-Public Use
  Company Number: US-TEVA-785414USA

PATIENT
  Sex: Male

DRUGS (1)
  1. LIDOCAINE HCL 2% JELLY [Suspect]
     Active Substance: LIDOCAINE HYDROCHLORIDE
     Indication: ARTHRALGIA

REACTIONS (9)
  - Gait disturbance [Unknown]
  - Product physical issue [Unknown]
  - Product physical consistency issue [None]
  - Insomnia [Unknown]
  - Intentional product use issue [None]
  - Product quality issue [None]
  - Intentional product misuse [Unknown]
  - Drug ineffective [Unknown]
  - Product substitution issue [None]
